FAERS Safety Report 17744728 (Version 2)
Quarter: 2020Q2

REPORT INFORMATION
  Report Type: Spontaneous
  Country: US (occurrence: US)
  Receive Date: 20200505
  Receipt Date: 20200522
  Transmission Date: 20200714
  Serious: No
  Sender: FDA-Public Use
  Company Number: US-PFIZER INC-2020177736

PATIENT
  Age: 19 Year
  Sex: Male
  Weight: 83.91 kg

DRUGS (4)
  1. MARIJUANA [Interacting]
     Active Substance: CANNABIS SATIVA SUBSP. INDICA TOP
     Dosage: 100 MG
  2. MOTRIN [Interacting]
     Active Substance: IBUPROFEN
     Dosage: UNK
  3. VICODIN [Interacting]
     Active Substance: ACETAMINOPHEN\HYDROCODONE BITARTRATE
     Dosage: UNK
  4. VIAGRA [Suspect]
     Active Substance: SILDENAFIL CITRATE
     Dosage: UNK

REACTIONS (2)
  - Drug interaction [Unknown]
  - Erection increased [Unknown]
